FAERS Safety Report 6580080-8 (Version None)
Quarter: 2010Q1

REPORT INFORMATION
  Report Type: 
  Country: None (occurrence: None)
  Receive Date: 20100212
  Receipt Date: 20100204
  Transmission Date: 20100710
  Serious: Yes (Life-Threatening, Hospitalization, Disabling)
  Sender: FDA-Public Use
  Company Number: US-MERCK-1002USA00812

PATIENT
  Age: 52 Year
  Sex: Female

DRUGS (6)
  1. SINGULAIR [Suspect]
     Indication: COUGH
     Route: 048
     Dates: start: 20091218, end: 20100111
  2. METFORMIN [Concomitant]
     Route: 065
  3. HYZAAR [Concomitant]
     Route: 048
  4. COUGH, COLD, AND FLU THERAPIES (UNSPECIFIED) [Concomitant]
     Route: 065
  5. PREDNISONE [Concomitant]
     Route: 065
  6. MEDROL [Concomitant]
     Route: 065

REACTIONS (4)
  - DYSPNOEA [None]
  - PRURITUS [None]
  - RESPIRATORY DISORDER [None]
  - WHEEZING [None]
